FAERS Safety Report 6301585-0 (Version None)
Quarter: 2009Q3

REPORT INFORMATION
  Report Type: 
  Country: None (occurrence: None)
  Receive Date: 20090805
  Receipt Date: 20090720
  Transmission Date: 20100115
  Serious: Yes (Hospitalization)
  Sender: FDA-Public Use
  Company Number: 2009002187

PATIENT
  Age: 66 Year
  Sex: Male

DRUGS (1)
  1. ERLOTINIB / PLACEBO(ERLOTINIB HC1) (TABLET) (ERLOTINIB HC1) [Suspect]
     Indication: PANCREATIC CARCINOMA
     Dosage: (QD),ORAL
     Route: 048
     Dates: start: 20090610, end: 20090715

REACTIONS (1)
  - ANAEMIA [None]
